FAERS Safety Report 15150004 (Version 1)
Quarter: 2018Q3

REPORT INFORMATION
  Report Type: Spontaneous
  Country: IT (occurrence: IT)
  Receive Date: 20180716
  Receipt Date: 20180716
  Transmission Date: 20181010
  Serious: Yes (Hospitalization)
  Sender: FDA-Public Use
  Company Number: IT-MYLANLABS-2018M1050888

PATIENT
  Age: 25 Year
  Sex: Male

DRUGS (1)
  1. IDARUBICIN [Suspect]
     Active Substance: IDARUBICIN
     Indication: ACUTE PROMYELOCYTIC LEUKAEMIA
     Dosage: CUMULATIVE DOSE: }90 MG/M2
     Route: 065

REACTIONS (5)
  - Mitral valve incompetence [Recovering/Resolving]
  - Ventricular dysfunction [Recovering/Resolving]
  - Left ventricular dilatation [Recovered/Resolved]
  - Cardiac failure [Recovered/Resolved]
  - Ventricular hypokinesia [Recovering/Resolving]
